FAERS Safety Report 4591747-5 (Version None)
Quarter: 2005Q1

REPORT INFORMATION
  Report Type: 
  Country: None (occurrence: None)
  Receive Date: 20050223
  Receipt Date: 20050223
  Transmission Date: 20050727
  Serious: Yes (Hospitalization)
  Sender: FDA-Public Use
  Company Number: None

PATIENT
  Age: 24 Year
  Sex: Female

DRUGS (3)
  1. SEROQUEL [Suspect]
     Indication: BIPOLAR II DISORDER
     Dosage: Q HS DAILY
  2. LAMICTAL [Suspect]
     Indication: BIPOLAR II DISORDER
     Dosage: QHS DAILY
  3. ORTHO TRI-CYCLEN LO [Concomitant]

REACTIONS (1)
  - CHOLECYSTITIS [None]
